FAERS Safety Report 8664024 (Version 4)
Quarter: 2012Q4

REPORT INFORMATION
  Report Type: 
  Country: US (occurrence: US)
  Receive Date: 20120713
  Receipt Date: 20121211
  Transmission Date: 20130627
  Serious: Yes (Hospitalization, Other)
  Sender: FDA-Public Use
  Company Number: US-ABBOTT-12P-163-0954176-00

PATIENT
  Sex: Male
  Weight: 179.33 kg

DRUGS (9)
  1. ANDROGEL [Suspect]
     Indication: BLOOD TESTOSTERONE DECREASED
     Dosage: 8 pumps daily
     Dates: start: 201009
  2. ANDROGEL [Suspect]
  3. ANDROGEL [Suspect]
     Indication: BLOOD TESTOSTERONE DECREASED
     Dosage: 4 pumps daily
     Dates: start: 201111, end: 201112
  4. ANDROGEL [Suspect]
     Dosage: 4 pumps daily
     Dates: start: 201201
  5. METFORMIN [Concomitant]
     Indication: DIABETES MELLITUS
  6. GLYBURIDE [Concomitant]
     Indication: DIABETES MELLITUS
  7. LISINOPRIL [Concomitant]
     Indication: RENAL DISORDER
  8. LISINOPRIL [Concomitant]
     Indication: PROPHYLAXIS
  9. LEVOXYL [Concomitant]
     Indication: HORMONE REPLACEMENT THERAPY

REACTIONS (8)
  - Thyroid cancer [Recovered/Resolved]
  - Acne [Not Recovered/Not Resolved]
  - Aggression [Unknown]
  - Dysphonia [Unknown]
  - Blood testosterone decreased [Unknown]
  - Mood swings [Not Recovered/Not Resolved]
  - Hyperhidrosis [Not Recovered/Not Resolved]
  - Drug ineffective [Unknown]
